FAERS Safety Report 13207214 (Version 1)
Quarter: 2017Q1

REPORT INFORMATION
  Report Type: Spontaneous
  Country: US (occurrence: US)
  Receive Date: 20170209
  Receipt Date: 20170209
  Transmission Date: 20170428
  Serious: Yes (Disabling)
  Sender: FDA-Public Use
  Company Number: None

PATIENT
  Age: 68 Year
  Sex: Female
  Weight: 55.35 kg

DRUGS (6)
  1. WELLBUTRIN [Concomitant]
     Active Substance: BUPROPION HYDROCHLORIDE
  2. METAXALONE 800 MG TAB SAN [Suspect]
     Active Substance: METAXALONE
     Indication: BACK PAIN
     Dosage: ?          QUANTITY:1 TABLET(S);?
     Route: 048
     Dates: start: 20150424, end: 20170207
  3. NAPROXIN SODIUM [Concomitant]
  4. METAXALONE 800 MG TAB SAN [Suspect]
     Active Substance: METAXALONE
     Indication: ARTHRALGIA
     Dosage: ?          QUANTITY:1 TABLET(S);?
     Route: 048
     Dates: start: 20150424, end: 20170207
  5. CONCERTA [Concomitant]
     Active Substance: METHYLPHENIDATE HYDROCHLORIDE
  6. METAXALONE 800 MG TAB SAN [Suspect]
     Active Substance: METAXALONE
     Indication: SPINAL COLUMN STENOSIS
     Dosage: ?          QUANTITY:1 TABLET(S);?
     Route: 048
     Dates: start: 20150424, end: 20170207

REACTIONS (3)
  - Drug ineffective [None]
  - Aphthous ulcer [None]
  - Oral lichen planus [None]

NARRATIVE: CASE EVENT DATE: 20170131
